FAERS Safety Report 14459643 (Version 1)
Quarter: 2018Q1

REPORT INFORMATION
  Report Type: Spontaneous
  Country: US (occurrence: US)
  Receive Date: 20180129
  Receipt Date: 20180129
  Transmission Date: 20180509
  Serious: No
  Sender: FDA-Public Use
  Company Number: None

PATIENT
  Age: 60 Year
  Sex: Male

DRUGS (3)
  1. ALBUTEROL. [Concomitant]
     Active Substance: ALBUTEROL
  2. CEFDINIR. [Suspect]
     Active Substance: CEFDINIR
     Indication: INFLUENZA LIKE ILLNESS
     Dates: start: 20180119, end: 20180123
  3. ADVAIR HFA [Concomitant]
     Active Substance: FLUTICASONE PROPIONATE\SALMETEROL XINAFOATE

REACTIONS (10)
  - Abdominal pain [None]
  - Nausea [None]
  - Dyspnoea [None]
  - Cough [None]
  - Dizziness [None]
  - Muscle spasms [None]
  - Feeling abnormal [None]
  - Pyrexia [None]
  - Headache [None]
  - Oropharyngeal pain [None]

NARRATIVE: CASE EVENT DATE: 20180123
